FAERS Safety Report 4862449-2 (Version None)
Quarter: 2005Q4

REPORT INFORMATION
  Report Type: 
  Country: None (occurrence: None)
  Receive Date: 20051221
  Receipt Date: 20050421
  Transmission Date: 20060501
  Serious: Yes (Death, Other)
  Sender: FDA-Public Use
  Company Number: PHBS2005NZ05705

PATIENT
  Sex: Female

DRUGS (1)
  1. GLEEVEC [Suspect]
     Indication: GASTROINTESTINAL STROMAL TUMOUR
     Dosage: UNK, UNK
     Route: 048
     Dates: start: 20041201, end: 20050408

REACTIONS (5)
  - ACUTE PULMONARY OEDEMA [None]
  - ANAEMIA [None]
  - PERIORBITAL OEDEMA [None]
  - RASH [None]
  - TINNITUS [None]
